FAERS Safety Report 7259745-0 (Version None)
Quarter: 2011Q1

REPORT INFORMATION
  Report Type: 
  Country: None (occurrence: None)
  Receive Date: 20110130
  Receipt Date: 20101103
  Transmission Date: 20110831
  Serious: No
  Sender: FDA-Public Use
  Company Number: US-ABBOTT-10P-163-0663020-00

PATIENT
  Age: 15 Year
  Sex: Female

DRUGS (5)
  1. FENTANYL [Concomitant]
     Indication: CROHN'S DISEASE
     Dosage: PATCH
     Route: 062
  2. FENTANYL [Concomitant]
     Indication: SPINAL FRACTURE
  3. VICODIN [Concomitant]
     Indication: PAIN
  4. HUMIRA [Suspect]
     Indication: CROHN'S DISEASE
     Dates: start: 20100712, end: 20101019
  5. VICODIN [Concomitant]
     Indication: SPINAL FRACTURE

REACTIONS (3)
  - PAIN [None]
  - CROHN'S DISEASE [None]
  - DRUG INEFFECTIVE [None]
